FAERS Safety Report 9086799 (Version 1)
Quarter: 2013Q1

REPORT INFORMATION
  Report Type: Report from Study
  Country: US (occurrence: US)
  Receive Date: 20130131
  Receipt Date: 20130131
  Transmission Date: 20140127
  Serious: Yes (Hospitalization, Other)
  Sender: FDA-Public Use
  Company Number: US-ABBOTT-12P-163-0945581-00

PATIENT
  Age: 35 Year
  Sex: Female

DRUGS (6)
  1. HUMIRA 40 MG/0.8 ML PEN [Suspect]
     Indication: CROHN^S DISEASE
     Dosage: LOADING DOSE
     Dates: start: 20120517, end: 20120517
  2. HUMIRA 40 MG/0.8 ML PEN [Suspect]
     Dosage: LOADING DOSE, INTERRUPTED
     Dates: start: 20120601, end: 20120601
  3. HUMIRA 40 MG/0.8 ML PEN [Suspect]
     Dates: start: 20120517
  4. IMURAN [Concomitant]
  5. PREDNISONE [Concomitant]
  6. LIALDA [Concomitant]
     Indication: CROHN^S DISEASE
     Dosage: 4 TABS DAILY

REACTIONS (5)
  - Crohn^s disease [Not Recovered/Not Resolved]
  - Abscess intestinal [Not Recovered/Not Resolved]
  - Small intestinal perforation [Recovering/Resolving]
  - Malaise [Unknown]
  - Drug ineffective [Unknown]
